FAERS Safety Report 4498824-8 (Version None)
Quarter: 2004Q4

REPORT INFORMATION
  Report Type: 
  Country: None (occurrence: None)
  Receive Date: 20041108
  Receipt Date: 20041026
  Transmission Date: 20050328
  Serious: Yes (Other)
  Sender: FDA-Public Use
  Company Number: 2004084644

PATIENT
  Age: 79 Year
  Sex: Male
  Weight: 88.4514 kg

DRUGS (5)
  1. NORVASC [Suspect]
     Indication: HYPERTENSION
     Dosage: 10 MG (10 MG , 1 IN 1 D), ORAL
     Route: 048
     Dates: start: 20000605
  2. LOTREL [Suspect]
     Indication: HYPERTENSION
     Dates: start: 20040701
  3. LANSOPRAZOLE [Concomitant]
  4. GLIPIZIDE [Concomitant]
  5. FINASTERIDE [Concomitant]

REACTIONS (7)
  - ARTHRALGIA [None]
  - BODY TEMPERATURE INCREASED [None]
  - CHOLECYSTITIS INFECTIVE [None]
  - HEART RATE INCREASED [None]
  - JOINT SWELLING [None]
  - POST PROCEDURAL COMPLICATION [None]
  - RASH ERYTHEMATOUS [None]
